FAERS Safety Report 7911496-2 (Version None)
Quarter: 2011Q4

REPORT INFORMATION
  Report Type: 
  Country: None (occurrence: None)
  Receive Date: 20111101
  Receipt Date: 20110210
  Transmission Date: 20120403
  Serious: Yes (Death)
  Sender: FDA-Public Use
  Company Number: 266698USA

PATIENT
  Sex: Female

DRUGS (1)
  1. SPRINTEC [Suspect]

REACTIONS (1)
  - DEATH [None]
